FAERS Safety Report 10222353 (Version 1)
Quarter: 2014Q2

REPORT INFORMATION
  Report Type: Spontaneous
  Country: CO (occurrence: CO)
  Receive Date: 20140606
  Receipt Date: 20140606
  Transmission Date: 20141212
  Serious: Yes (Other)
  Sender: FDA-Public Use
  Company Number: CO-PFIZER INC-2014154277

PATIENT
  Age: 5 Year
  Sex: Female

DRUGS (2)
  1. GENOTROPIN [Suspect]
     Indication: BODY HEIGHT BELOW NORMAL
     Dosage: 0.7 MG, 1X/DAY
     Route: 058
     Dates: start: 2012
  2. GENOTROPIN [Suspect]
     Indication: UNDERWEIGHT

REACTIONS (1)
  - Umbilical hernia [Not Recovered/Not Resolved]
